FAERS Safety Report 6910383-6 (Version None)
Quarter: 2010Q3

REPORT INFORMATION
  Report Type: 
  Country: None (occurrence: None)
  Receive Date: 20100806
  Receipt Date: 20100727
  Transmission Date: 20110219
  Serious: Yes (Life-Threatening, Hospitalization)
  Sender: FDA-Public Use
  Company Number: JP-JNJFOC-20070204302

PATIENT
  Sex: Female
  Weight: 34 kg

DRUGS (12)
  1. REMICADE [Suspect]
     Indication: RHEUMATOID ARTHRITIS
     Route: 042
  2. REMICADE [Suspect]
     Route: 042
  3. REMICADE [Suspect]
     Route: 042
  4. PREDNISOLONE [Suspect]
     Indication: RHEUMATOID ARTHRITIS
     Dosage: TOTAL NIGHT DOSE
     Route: 048
  5. RHEUMATREX [Suspect]
     Indication: RHEUMATOID ARTHRITIS
     Route: 048
  6. PREDONINE [Suspect]
     Indication: RHEUMATOID ARTHRITIS
     Dosage: TOTAL DAILY MORNING DOSE
  7. AMLODIPINE BESYLATE [Concomitant]
     Dosage: TOTAL MORNING DOSE
  8. BLOPRESS [Concomitant]
     Dosage: TOTAL MORNING DOSE
  9. FOLIAMIN [Concomitant]
  10. THIOLA [Concomitant]
     Dosage: AFTER EACH MEAL
  11. TAKEPRON [Concomitant]
  12. FOSAMAC [Concomitant]
     Indication: OSTEOPOROSIS
     Dosage: MORNING

REACTIONS (3)
  - ENDOCARDITIS [None]
  - LISTERIA SEPSIS [None]
  - SEPTIC SHOCK [None]
